FAERS Safety Report 17740236 (Version 2)
Quarter: 2020Q2

REPORT INFORMATION
  Report Type: Spontaneous
  Country: US (occurrence: US)
  Receive Date: 20200504
  Receipt Date: 20200604
  Transmission Date: 20200714
  Serious: No
  Sender: FDA-Public Use
  Company Number: US-PFIZER INC-2020131486

PATIENT
  Age: 62 Year
  Sex: Female

DRUGS (2)
  1. XELJANZ XR [Suspect]
     Active Substance: TOFACITINIB CITRATE
     Indication: RHEUMATOID ARTHRITIS
     Dosage: 11 MG, 1X/DAY
     Route: 048
     Dates: start: 201910
  2. GABAPENTIN. [Concomitant]
     Active Substance: GABAPENTIN
     Dosage: UNK

REACTIONS (9)
  - Cough [Unknown]
  - Inflammation [Unknown]
  - Product dose omission [Unknown]
  - Asthenia [Unknown]
  - Hypertension [Unknown]
  - Back pain [Not Recovered/Not Resolved]
  - Decreased appetite [Unknown]
  - Musculoskeletal stiffness [Recovering/Resolving]
  - Bone disorder [Unknown]
